FAERS Safety Report 6290274-7 (Version None)
Quarter: 2009Q3

REPORT INFORMATION
  Report Type: 
  Country: None (occurrence: None)
  Receive Date: 20090730
  Receipt Date: 20090204
  Transmission Date: 20100115
  Serious: No
  Sender: FDA-Public Use
  Company Number: US-BRISTOL-MYERS SQUIBB COMPANY-14494082

PATIENT
  Age: 73 Year
  Sex: Female

DRUGS (3)
  1. COUMADIN [Suspect]
     Indication: THROMBOSIS
     Dates: start: 20071201
  2. DOXIL [Suspect]
     Indication: MALIGNANT PERITONEAL NEOPLASM
     Dosage: 62MG 1 IN 1 DAY TAKEN FROM 13JAN09.
     Route: 042
  3. MILK OF MAGNESIA TAB [Concomitant]

REACTIONS (3)
  - ANXIETY [None]
  - CONSTIPATION [None]
  - NAUSEA [None]
